FAERS Safety Report 22148296 (Version 1)
Quarter: 2023Q1

REPORT INFORMATION
  Report Type: Spontaneous
  Country: US (occurrence: US)
  Receive Date: 20230328
  Receipt Date: 20230328
  Transmission Date: 20230417
  Serious: No
  Sender: FDA-Public Use
  Company Number: US-SA-SAC20230324000600

PATIENT
  Age: 50 Year
  Sex: Male

DRUGS (5)
  1. DUPIXENT [Suspect]
     Active Substance: DUPILUMAB
     Indication: Dermatitis allergic
     Dosage: 300 MG, QOW
     Route: 058
     Dates: start: 20230112
  2. DUPIXENT [Suspect]
     Active Substance: DUPILUMAB
     Indication: Dermatitis atopic
  3. PROTOPIC [Concomitant]
     Active Substance: TACROLIMUS
     Dosage: UNK
     Route: 065
  4. DESONIDE [Concomitant]
     Active Substance: DESONIDE
     Dosage: UNK
     Route: 065
  5. CLOBETASOL [Concomitant]
     Active Substance: CLOBETASOL
     Dosage: UNK
     Route: 065

REACTIONS (1)
  - Drug ineffective [Unknown]

NARRATIVE: CASE EVENT DATE: 20230101
